FAERS Safety Report 9690380 (Version 1)
Quarter: 2013Q4

REPORT INFORMATION
  Report Type: Report from Study
  Country: US (occurrence: US)
  Receive Date: 20131115
  Receipt Date: 20131115
  Transmission Date: 20140711
  Serious: Yes (Other)
  Sender: FDA-Public Use
  Company Number: US-JNJFOC-20131104560

PATIENT
  Age: 62 Year
  Sex: Male
  Weight: 94.35 kg

DRUGS (37)
  1. INVOKANA [Suspect]
     Indication: TYPE 2 DIABETES MELLITUS
     Route: 048
     Dates: start: 201305, end: 201308
  2. INVOKANA [Suspect]
     Indication: TYPE 2 DIABETES MELLITUS
     Route: 048
     Dates: start: 201308, end: 201309
  3. INVOKANA [Suspect]
     Indication: TYPE 2 DIABETES MELLITUS
     Route: 048
     Dates: start: 201309, end: 201310
  4. INVOKANA [Suspect]
     Indication: TYPE 2 DIABETES MELLITUS
     Route: 048
     Dates: start: 201310
  5. HUMIRA [Concomitant]
     Indication: PSORIASIS
     Route: 058
     Dates: start: 2006
  6. HUMIRA [Concomitant]
     Indication: PSORIATIC ARTHROPATHY
     Route: 058
     Dates: start: 2006
  7. LIPITOR [Concomitant]
     Indication: BLOOD CHOLESTEROL
     Route: 048
     Dates: start: 2003
  8. AVAPRO [Concomitant]
     Indication: BLOOD PRESSURE
     Route: 048
     Dates: start: 2003
  9. AVAPRO [Concomitant]
     Indication: PROTEINURIA
     Route: 048
     Dates: start: 2003
  10. METFORMIN [Concomitant]
     Indication: TYPE 2 DIABETES MELLITUS
     Route: 048
  11. BYETTA [Concomitant]
     Indication: BLOOD GLUCOSE ABNORMAL
     Route: 058
     Dates: start: 2008
  12. BYETTA [Concomitant]
     Indication: WEIGHT LOSS DIET
     Route: 058
     Dates: start: 2008
  13. SYMLIN [Concomitant]
     Indication: DIABETES MELLITUS
     Route: 058
     Dates: start: 2008
  14. SYMLIN [Concomitant]
     Indication: WEIGHT LOSS DIET
     Route: 058
     Dates: start: 2008
  15. PROVIGIL [Concomitant]
     Indication: SOMNOLENCE
     Route: 048
     Dates: start: 2001
  16. JANUVIA [Concomitant]
     Indication: DIABETES MELLITUS
     Route: 048
     Dates: start: 2005
  17. NORVASC [Concomitant]
     Indication: RAYNAUD^S PHENOMENON
     Route: 048
     Dates: start: 2001
  18. ALLOPURINOL [Concomitant]
     Indication: NEPHROLITHIASIS
     Route: 048
     Dates: start: 1988
  19. FLUTICASONE [Concomitant]
     Indication: NASAL CONGESTION
     Route: 045
     Dates: start: 2001
  20. DOXEPIN [Concomitant]
     Indication: SLEEP DISORDER THERAPY
     Route: 048
     Dates: start: 2005
  21. VIAGRA [Concomitant]
     Indication: ERECTILE DYSFUNCTION
     Route: 048
     Dates: start: 2003
  22. COQ10 [Concomitant]
     Indication: BLOOD CHOLESTEROL
     Route: 048
     Dates: start: 2005
  23. BABY ASPIRIN [Concomitant]
     Indication: PROPHYLAXIS
     Route: 048
     Dates: start: 1983
  24. VITAMIN D [Concomitant]
     Indication: VITAMIN SUPPLEMENTATION
     Route: 048
     Dates: start: 2001
  25. CHROMIUM PICOLINATE [Concomitant]
     Indication: BLOOD GLUCOSE ABNORMAL
     Route: 048
     Dates: start: 1993
  26. WELLBUTRIN [Concomitant]
     Indication: ASTHENIA
     Route: 048
  27. WELLBUTRIN [Concomitant]
     Indication: WEIGHT LOSS DIET
     Route: 048
  28. ZONISAMIDE [Concomitant]
     Indication: ASTHENIA
     Route: 048
     Dates: start: 2005
  29. ZONISAMIDE [Concomitant]
     Indication: WEIGHT LOSS DIET
     Route: 048
     Dates: start: 2005
  30. TAURINE [Concomitant]
     Indication: WEIGHT LOSS DIET
     Route: 048
     Dates: start: 2007
  31. ACTIGALL [Concomitant]
     Indication: WEIGHT LOSS DIET
     Route: 048
     Dates: start: 2007
  32. FINASTERIDE [Concomitant]
     Indication: UNEVALUABLE EVENT
     Route: 048
     Dates: start: 2008
  33. FOLGARD RX [Concomitant]
     Indication: NUTRITIONAL SUPPLEMENTATION
     Route: 048
     Dates: start: 2005
  34. ACARBOSE [Concomitant]
     Indication: WEIGHT LOSS DIET
     Route: 048
     Dates: start: 2005
  35. MAGNESIUM [Concomitant]
     Indication: MUSCLE SPASMS
     Route: 048
     Dates: start: 1998
  36. QUININE SULFATE [Concomitant]
     Indication: MUSCLE SPASMS
     Route: 048
     Dates: start: 1998
  37. NEXIUM [Concomitant]
     Indication: GASTRIC DISORDER
     Route: 048
     Dates: start: 2003

REACTIONS (6)
  - Urine output decreased [Recovered/Resolved]
  - Weight decreased [Not Recovered/Not Resolved]
  - Weight increased [Recovered/Resolved]
  - Wrong technique in drug usage process [Recovered/Resolved]
  - Inappropriate schedule of drug administration [Not Recovered/Not Resolved]
  - Off label use [Not Recovered/Not Resolved]
